FAERS Safety Report 21789724 (Version 2)
Quarter: 2022Q4

REPORT INFORMATION
  Report Type: Report from Study
  Country: US (occurrence: US)
  Receive Date: 20221228
  Receipt Date: 20221229
  Transmission Date: 20230112
  Serious: No
  Sender: FDA-Public Use
  Company Number: US-002147023-NVSC2022US300133

PATIENT
  Sex: Female

DRUGS (1)
  1. VOTRIENT [Suspect]
     Active Substance: PAZOPANIB HYDROCHLORIDE
     Indication: Product used for unknown indication
     Dosage: 200 MG, BID
     Route: 048

REACTIONS (4)
  - Inappropriate schedule of product administration [Unknown]
  - Gait disturbance [Unknown]
  - Sciatic nerve injury [Unknown]
  - Dysgraphia [Unknown]
